FAERS Safety Report 6317531-X (Version None)
Quarter: 2009Q3

REPORT INFORMATION
  Report Type: 
  Country: None (occurrence: None)
  Receive Date: 20090820
  Receipt Date: 20090820
  Transmission Date: 20100115
  Serious: No
  Sender: FDA-Public Use
  Company Number: None

PATIENT
  Age: 75 Year
  Sex: Female
  Weight: 68.0396 kg

DRUGS (3)
  1. LOTREL [Suspect]
     Dosage: QD
     Dates: start: 20081015
  2. AMLODIPINE [Suspect]
     Dosage: QD
     Dates: start: 20080711
  3. BENZAPRIL [Suspect]
     Dosage: QD PO
     Route: 048

REACTIONS (2)
  - BLOOD PRESSURE INADEQUATELY CONTROLLED [None]
  - DRUG INEFFECTIVE [None]
